FAERS Safety Report 4304162-6 (Version None)
Quarter: 2004Q1

REPORT INFORMATION
  Report Type: 
  Country: None (occurrence: None)
  Receive Date: 20040225
  Receipt Date: 20040220
  Transmission Date: 20041129
  Serious: Yes (Other)
  Sender: FDA-Public Use
  Company Number: 04-02-0270

PATIENT
  Age: 50 Year
  Sex: Female

DRUGS (10)
  1. FUROSEMIDE [Suspect]
     Dosage: 40 MG QAM ORAL
     Route: 048
     Dates: start: 20040129, end: 20040203
  2. ULTRAM [Concomitant]
  3. QUININE SULFATE [Concomitant]
  4. EFFEXOR [Concomitant]
  5. HYDROXYZINE [Concomitant]
  6. AMBIEN [Concomitant]
  7. ACTOS [Concomitant]
  8. PERCOCET [Concomitant]
  9. CELEXA [Concomitant]
  10. REGULAR INSULIN [Concomitant]

REACTIONS (1)
  - STEVENS-JOHNSON SYNDROME [None]
